FAERS Safety Report 20436812 (Version 2)
Quarter: 2022Q1

REPORT INFORMATION
  Report Type: Report from Study
  Country: CA (occurrence: CA)
  Receive Date: 20220207
  Receipt Date: 20220307
  Transmission Date: 20220423
  Serious: Yes (Other)
  Sender: FDA-Public Use
  Company Number: CA-ABBVIE-22K-028-4264533-00

PATIENT
  Sex: Male

DRUGS (1)
  1. HUMIRA [Suspect]
     Active Substance: ADALIMUMAB
     Indication: Crohn^s disease
     Route: 058
     Dates: start: 20190703

REACTIONS (19)
  - Colon adenoma [Unknown]
  - Hepatic cyst [Unknown]
  - Drug level decreased [Unknown]
  - Weight decreased [Unknown]
  - Gastrointestinal disorder [Unknown]
  - Bowel movement irregularity [Unknown]
  - Gastrointestinal wall thickening [Unknown]
  - Adrenal adenoma [Unknown]
  - Hepatic steatosis [Unknown]
  - Abdominal distension [Unknown]
  - Discomfort [Unknown]
  - Haemangioma of liver [Unknown]
  - Abdominal pain lower [Unknown]
  - Stress [Unknown]
  - Depression [Unknown]
  - Asthenia [Unknown]
  - Insomnia [Unknown]
  - Decreased appetite [Unknown]
  - Oropharyngeal pain [Unknown]
